FAERS Safety Report 8494589-3 (Version None)
Quarter: 2012Q3

REPORT INFORMATION
  Report Type: 
  Country: None (occurrence: None)
  Receive Date: 20120709
  Receipt Date: 20120627
  Transmission Date: 20120928
  Serious: Yes (Other)
  Sender: FDA-Public Use
  Company Number: CZ-JNJFOC-20120700334

PATIENT
  Sex: Male
  Weight: 82 kg

DRUGS (6)
  1. AMLOZEK [Concomitant]
     Indication: HYPERTENSION
     Route: 048
     Dates: start: 20120401
  2. ALL OTHER THERAPEUTIC PRODUCTS [Concomitant]
     Indication: HYPERTENSION
     Route: 048
     Dates: start: 20120401
  3. SULFASALAZINE [Concomitant]
     Indication: COLITIS ULCERATIVE
     Route: 048
     Dates: start: 20080317
  4. CALCIUM CARBONATE [Concomitant]
     Indication: OSTEOPOROSIS
     Route: 065
     Dates: start: 20110501
  5. REMICADE [Suspect]
     Indication: COLITIS ULCERATIVE
     Dosage: 21 INFUSIONS IN TOTAL
     Route: 042
     Dates: start: 20090615, end: 20120502
  6. VIGANTOL [Concomitant]
     Indication: OSTEOPOROSIS
     Dosage: 15GTT
     Route: 048
     Dates: start: 20110501

REACTIONS (1)
  - KAPOSI'S SARCOMA [None]
